FAERS Safety Report 16089294 (Version 3)
Quarter: 2019Q2

REPORT INFORMATION
  Report Type: Report from Study
  Country: PK (occurrence: PK)
  Receive Date: 20190319
  Receipt Date: 20190426
  Transmission Date: 20190711
  Serious: Yes (Other)
  Sender: FDA-Public Use
  Company Number: PK-ROCHE-2283307

PATIENT
  Age: 56 Year
  Sex: Female

DRUGS (2)
  1. RISTOVA [Suspect]
     Active Substance: RITUXIMAB
     Indication: DIFFUSE LARGE B-CELL LYMPHOMA
     Route: 042
  2. RISTOVA [Suspect]
     Active Substance: RITUXIMAB
     Route: 042

REACTIONS (2)
  - Blood test abnormal [Unknown]
  - Weight increased [Unknown]
